FAERS Safety Report 8503737-8 (Version None)
Quarter: 2012Q3

REPORT INFORMATION
  Report Type: 
  Country: None (occurrence: None)
  Receive Date: 20120711
  Receipt Date: 20120628
  Transmission Date: 20120928
  Serious: Yes (Other)
  Sender: FDA-Public Use
  Company Number: GB-SANOFI-AVENTIS-2012SA047216

PATIENT
  Age: 49 Year
  Sex: Male
  Weight: 51 kg

DRUGS (3)
  1. CABAZITAXEL [Suspect]
     Indication: SARCOMA METASTATIC
     Route: 042
     Dates: start: 20110101, end: 20110101
  2. CABAZITAXEL [Suspect]
     Route: 042
     Dates: start: 20120315, end: 20120315
  3. NEUPOGEN [Concomitant]
     Route: 065
     Dates: end: 20120316

REACTIONS (1)
  - CATARACT [None]
